FAERS Safety Report 6856144-8 (Version None)
Quarter: 2010Q2

REPORT INFORMATION
  Report Type: 
  Country: None (occurrence: None)
  Receive Date: 20100629
  Receipt Date: 20100512
  Transmission Date: 20101027
  Serious: No
  Sender: FDA-Public Use
  Company Number: US-WYE-H15262210

PATIENT
  Sex: Male
  Weight: 113.5 kg

DRUGS (1)
  1. PRISTIQ [Suspect]
     Indication: DEPRESSION
     Dosage: 50 MG 1X PER 1 DAY; 50 MG 1X PER 1 DAY; 100 MG 1X PER 1 DAY
     Dates: start: 20091101

REACTIONS (3)
  - MIGRAINE [None]
  - SEDATION [None]
  - WRONG TECHNIQUE IN DRUG USAGE PROCESS [None]
